FAERS Safety Report 7711716-3 (Version None)
Quarter: 2011Q3

REPORT INFORMATION
  Report Type: 
  Country: None (occurrence: None)
  Receive Date: 20110826
  Receipt Date: 20110816
  Transmission Date: 20111222
  Serious: Yes (Hospitalization)
  Sender: FDA-Public Use
  Company Number: US-JNJFOC-20110807609

PATIENT
  Age: 50 Year
  Sex: Male
  Weight: 90.2 kg

DRUGS (9)
  1. INVEGA SUSTENNA [Suspect]
     Indication: SCHIZOPHRENIA
     Route: 030
     Dates: start: 20110712, end: 20110726
  2. ATIVAN [Concomitant]
     Indication: AGITATION
     Dosage: 2G/EVERY 4 HOURS PRN AS NEEDED
     Route: 048
  3. RISPERDAL [Suspect]
     Indication: SCHIZOPHRENIA
     Dosage: ONE TABLET
     Route: 048
     Dates: start: 20110811
  4. PROTONIX [Concomitant]
     Indication: PRODUCT USED FOR UNKNOWN INDICATION
     Route: 065
  5. HALDOL [Suspect]
     Dosage: AS NEEDED
     Route: 030
     Dates: start: 20110801
  6. HALDOL [Suspect]
     Indication: AGITATION
     Dosage: AS NEEDED
     Route: 048
     Dates: start: 20110801
  7. VISTARIL [Concomitant]
     Indication: PRODUCT USED FOR UNKNOWN INDICATION
     Route: 065
  8. COGENTIN [Concomitant]
     Indication: EXTRAPYRAMIDAL DISORDER
     Route: 048
  9. ARICEPT [Concomitant]
     Indication: DEMENTIA
     Route: 048

REACTIONS (3)
  - DISTURBANCE IN SOCIAL BEHAVIOUR [None]
  - HOSPITALISATION [None]
  - ABNORMAL BEHAVIOUR [None]
